FAERS Safety Report 9542517 (Version 2)
Quarter: 2013Q4

REPORT INFORMATION
  Report Type: Report from Study
  Country: US (occurrence: US)
  Receive Date: 20130923
  Receipt Date: 20131118
  Transmission Date: 20140711
  Serious: Yes (Hospitalization, Other)
  Sender: FDA-Public Use
  Company Number: US-TAKEDA-2013TUS000046

PATIENT
  Age: 56 Year
  Sex: Male
  Weight: 92.3 kg

DRUGS (10)
  1. BLINDED ALLOPURINOL [Suspect]
     Indication: HYPERURICAEMIA
     Dosage: 1 MG, QD
     Route: 048
     Dates: start: 20110216
  2. BLINDED FEBUXOSTAT [Suspect]
     Indication: HYPERURICAEMIA
     Dosage: 1 MG, QD
     Route: 048
     Dates: start: 20110216
  3. VERAPAMIL [Concomitant]
     Indication: HYPERTENSION
     Dosage: 120 MG, TID
     Route: 048
     Dates: start: 200605
  4. LISINOPRIL [Concomitant]
     Indication: HYPERTENSION
     Dosage: 20 MG, QD
     Route: 048
     Dates: start: 200605
  5. HYDROCHLOROTHIAZIDE [Concomitant]
     Indication: HYPERTENSION
     Dosage: 25 MG, QD
     Route: 048
     Dates: start: 200605
  6. CLONIDINE [Concomitant]
     Dosage: 0.2 MG, TID
     Route: 048
     Dates: start: 200605
  7. WARFARIN [Concomitant]
     Indication: CARDIOVASCULAR EVENT PROPHYLAXIS
     Dosage: 5 MG, QD
     Route: 048
     Dates: start: 200605
  8. SIMVASTATIN [Concomitant]
     Indication: HYPERLIPIDAEMIA
     Dosage: 40 MG, QD
     Route: 048
     Dates: start: 200605
  9. GABAPENTIN [Concomitant]
     Indication: NEUROPATHY PERIPHERAL
     Dosage: 100 MG, QD
     Route: 048
     Dates: start: 200605
  10. TYLENOL                            /00020001/ [Concomitant]
     Indication: HEADACHE
     Dosage: 500 MG, PRN
     Route: 048
     Dates: start: 200605

REACTIONS (1)
  - Cerebrovascular accident [Unknown]
